FAERS Safety Report 8236534-1 (Version None)
Quarter: 2012Q1

REPORT INFORMATION
  Report Type: 
  Country: None (occurrence: None)
  Receive Date: 20120327
  Receipt Date: 20120322
  Transmission Date: 20120608
  Serious: Yes (Other)
  Sender: FDA-Public Use
  Company Number: US-BAYER-2012-028774

PATIENT
  Age: 43 Year
  Sex: Female

DRUGS (6)
  1. FEXOFENADINE [Concomitant]
     Dosage: 180 MG, UNK
     Route: 048
     Dates: start: 20100602
  2. FLONASE [Concomitant]
     Dosage: UNK
     Dates: start: 20100603, end: 20100826
  3. ZYRTEC [Concomitant]
     Dosage: UNK
     Route: 048
     Dates: start: 20100826
  4. YAZ [Suspect]
     Dosage: UNK
     Dates: start: 20081203, end: 20100831
  5. SYNTHROID [Concomitant]
     Dosage: UNK
     Route: 048
     Dates: start: 20100826
  6. VANOS [Concomitant]
     Dosage: 0.1 %, UNK
     Route: 061
     Dates: start: 20100602, end: 20100826

REACTIONS (5)
  - PAIN IN EXTREMITY [None]
  - CONTUSION [None]
  - PHLEBITIS SUPERFICIAL [None]
  - OEDEMA PERIPHERAL [None]
  - DEEP VEIN THROMBOSIS [None]
